FAERS Safety Report 4285642-9 (Version None)
Quarter: 2004Q1

REPORT INFORMATION
  Report Type: 
  Country: None (occurrence: None)
  Receive Date: 20040203
  Receipt Date: 20040123
  Transmission Date: 20041129
  Serious: Yes (Hospitalization)
  Sender: FDA-Public Use
  Company Number: STA-AE-03-MTX-037

PATIENT
  Age: 77 Year
  Sex: Male

DRUGS (6)
  1. METHOTREXATE [Suspect]
     Indication: RHEUMATOID ARTHRITIS
     Dosage: 15 MG 1 X PER 1 WK, ORAL
     Route: 048
     Dates: start: 20010122, end: 20030201
  2. PARACETAMOL (PARACETAMOL) [Concomitant]
  3. ERYTHROMYCIN [Concomitant]
  4. FOLATE SODIUM (FOLATE SODIUM) [Concomitant]
  5. HYDROXYCHLOROQUINE SULFATE [Concomitant]
  6. SALMETEROL (SALMETEROL) [Concomitant]

REACTIONS (4)
  - ASTHENIA [None]
  - CHRONIC OBSTRUCTIVE AIRWAYS DISEASE EXACERBATED [None]
  - EMPHYSEMA [None]
  - PNEUMONIA [None]
